FAERS Safety Report 5755951-2 (Version None)
Quarter: 2008Q2

REPORT INFORMATION
  Report Type: 
  Country: None (occurrence: None)
  Receive Date: 20080602
  Receipt Date: 20080529
  Transmission Date: 20081010
  Serious: Yes (Hospitalization)
  Sender: FDA-Public Use
  Company Number: US-BRISTOL-MYERS SQUIBB COMPANY-14210298

PATIENT
  Age: 42 Year
  Sex: Female
  Weight: 73 kg

DRUGS (4)
  1. CETUXIMAB [Suspect]
     Indication: CERVIX CARCINOMA
     Dosage: START DATE OF FIRST COURSE: 21-APR-2008.
     Dates: start: 20080512, end: 20080512
  2. BENADRYL [Concomitant]
  3. MORPHINE [Concomitant]
     Route: 042
  4. PHENERGAN [Concomitant]
     Route: 042

REACTIONS (5)
  - ABDOMINAL PAIN [None]
  - HAEMATOCRIT DECREASED [None]
  - HAEMOGLOBIN DECREASED [None]
  - METASTASES TO ABDOMINAL CAVITY [None]
  - PYREXIA [None]
